FAERS Safety Report 9495271 (Version 1)
Quarter: 2013Q3

REPORT INFORMATION
  Report Type: Spontaneous
  Country: TR (occurrence: None)
  Receive Date: 20130828
  Receipt Date: 20130828
  Transmission Date: 20140515
  Serious: Yes (Hospitalization)
  Sender: FDA-Public Use
  Company Number: FK201303406

PATIENT
  Age: 45 Year
  Sex: Female

DRUGS (1)
  1. CYTARABINE (CYTARABINE) [Suspect]
     Indication: ACUTE MYELOID LEUKAEMIA

REACTIONS (4)
  - Sinus bradycardia [None]
  - Disease progression [None]
  - Acute myeloid leukaemia [None]
  - Blood pressure decreased [None]
